FAERS Safety Report 19184962 (Version 1)
Quarter: 2021Q2

REPORT INFORMATION
  Report Type: Spontaneous
  Country: US (occurrence: US)
  Receive Date: 20210427
  Receipt Date: 20210427
  Transmission Date: 20210717
  Serious: Yes (Other)
  Sender: FDA-Public Use
  Company Number: US-BAYER-2021-129437

PATIENT
  Age: 41 Year
  Sex: Female

DRUGS (2)
  1. ALKA?SELTZER PLUS SEVERE SINUS CONGESTION AND COUGH DAY AND NIGHT [Suspect]
     Active Substance: ACETAMINOPHEN\DEXTROMETHORPHAN HYDROBROMIDE\DOXYLAMINE SUCCINATE\PHENYLEPHRINE
     Indication: NASOPHARYNGITIS
     Dosage: 2 DF, OM
     Route: 048
     Dates: start: 20210422, end: 20210422
  2. ALKA?SELTZER PLUS SEVERE SINUS CONGESTION AND COUGH DAY AND NIGHT [Suspect]
     Active Substance: ACETAMINOPHEN\DEXTROMETHORPHAN HYDROBROMIDE\DOXYLAMINE SUCCINATE\PHENYLEPHRINE
     Indication: HYPERSENSITIVITY
     Dosage: 2 DF, HS
     Route: 048
     Dates: start: 20210421, end: 20210421

REACTIONS (1)
  - Foreign body in throat [Recovered/Resolved]

NARRATIVE: CASE EVENT DATE: 202104
